FAERS Safety Report 5400705-X (Version None)
Quarter: 2007Q3

REPORT INFORMATION
  Report Type: 
  Country: None (occurrence: None)
  Receive Date: 20070730
  Receipt Date: 20070718
  Transmission Date: 20080115
  Serious: Yes (Life-Threatening, Hospitalization)
  Sender: FDA-Public Use
  Company Number: ES-PFIZER INC-2007058733

PATIENT
  Age: 45 Year
  Sex: Male
  Weight: 80 kg

DRUGS (2)
  1. SALAZOPYRINA [Suspect]
     Indication: ARTHROPATHY
     Route: 048
     Dates: start: 20061122, end: 20061224
  2. FELDENE [Suspect]
     Indication: ARTHROPATHY
     Route: 048
     Dates: start: 20061122, end: 20061224

REACTIONS (5)
  - DRUG RASH WITH EOSINOPHILIA AND SYSTEMIC SYMPTOMS [None]
  - EOSINOPHILIA [None]
  - HYPERSENSITIVITY [None]
  - STAPHYLOCOCCAL SEPSIS [None]
  - TOXIC EPIDERMAL NECROLYSIS [None]
